FAERS Safety Report 19354855 (Version 2)
Quarter: 2021Q3

REPORT INFORMATION
  Report Type: Spontaneous
  Country: IN (occurrence: IN)
  Receive Date: 20210531
  Receipt Date: 20210730
  Transmission Date: 20211014
  Serious: Yes (Death)
  Sender: FDA-Public Use
  Company Number: IN-PFIZER INC-2021207020

PATIENT
  Age: 64 Year
  Sex: Female

DRUGS (11)
  1. FASLODEX [Concomitant]
     Active Substance: FULVESTRANT
     Dosage: 500 MG, MONTHLY (1/ MONTHS, INTRAMUSCULAR, 90 DAYS)
     Route: 030
  2. SHELCAL [CALCIUM;COLECALCIFEROL] [Concomitant]
     Active Substance: CALCIUM\CHOLECALCIFEROL
     Dosage: UNK, 2X/DAY
     Route: 048
  3. CROCIN [Concomitant]
     Active Substance: ACETAMINOPHEN
     Dosage: 650
  4. XGEVA [Concomitant]
     Active Substance: DENOSUMAB
     Dosage: 120 MG, MONTHLY
     Route: 058
  5. FEBUTAZ [Concomitant]
     Active Substance: FEBUXOSTAT
     Indication: BREAST CANCER METASTATIC
     Dosage: UNK, 1X/DAY
     Route: 048
  6. FASLODEX [Concomitant]
     Active Substance: FULVESTRANT
     Dosage: 500 MG, 2X/WEEK (250MG X 2 DOSES=500MG AT ONE TIME FOR 3 TIMES)
     Route: 030
     Dates: start: 202102
  7. BECOSULES?Z [Concomitant]
     Dosage: 1X20, ONCE IN A DAY
     Route: 048
  8. CALCIROL [CALCIUM CARBONATE;COLECALCIFEROL] [Concomitant]
     Dosage: WEEKLY
     Route: 048
  9. TYDOL [TAPENTADOL HYDROCHLORIDE] [Concomitant]
  10. MOMESONE [Concomitant]
     Dosage: UNK, 1X/DAY
     Route: 003
  11. PALBACE [Suspect]
     Active Substance: PALBOCICLIB
     Indication: BREAST CANCER METASTATIC
     Dosage: 125 MG, ONCE IN A DAY, 21 DAYS 7 DAYS OFF
     Route: 048
     Dates: start: 20210220, end: 20210516

REACTIONS (1)
  - Death [Fatal]
